FAERS Safety Report 25068664 (Version 2)
Quarter: 2025Q2

REPORT INFORMATION
  Report Type: Spontaneous
  Country: US (occurrence: US)
  Receive Date: 20250312
  Receipt Date: 20250407
  Transmission Date: 20250717
  Serious: No
  Sender: SANOFI AVENTIS
  Company Number: US-SANOFI-02436601

PATIENT
  Sex: Male
  Weight: 145 kg

DRUGS (2)
  1. ALTUVIIIO [Suspect]
     Active Substance: EFANESOCTOCOG ALFA
     Indication: Prophylaxis
     Dosage: 27 IU, QW
  2. ELIQUIS [Concomitant]
     Active Substance: APIXABAN
     Dates: start: 20250202

REACTIONS (2)
  - Back pain [Unknown]
  - Incorrect dose administered [Unknown]
